FAERS Safety Report 4681469-4 (Version None)
Quarter: 2005Q2

REPORT INFORMATION
  Report Type: 
  Country: None (occurrence: None)
  Receive Date: 20050603
  Receipt Date: 20050524
  Transmission Date: 20051028
  Serious: Yes (Other)
  Sender: FDA-Public Use
  Company Number: FR-ABBOTT-05P-056-0301470-00

PATIENT
  Age: 32 Year
  Sex: Male

DRUGS (3)
  1. DEPAKENE [Suspect]
     Indication: EPILEPSY
     Route: 048
     Dates: start: 19850101
  2. ZOLPIDEM [Suspect]
     Indication: SLEEP DISORDER DUE TO GENERAL MEDICAL CONDITION, INSOMNIA TYPE
     Route: 048
     Dates: start: 20050101, end: 20050506
  3. ZOLPIDEM [Suspect]
     Route: 048
     Dates: start: 20040501, end: 20050101

REACTIONS (4)
  - DRUG ABUSER [None]
  - DRUG WITHDRAWAL CONVULSIONS [None]
  - PETIT MAL EPILEPSY [None]
  - TREATMENT NONCOMPLIANCE [None]
